FAERS Safety Report 4383663-9 (Version None)
Quarter: 2004Q2

REPORT INFORMATION
  Report Type: 
  Country: None (occurrence: None)
  Receive Date: 20040623
  Receipt Date: 20040610
  Transmission Date: 20050107
  Serious: Yes (Other)
  Sender: FDA-Public Use
  Company Number: GB-GLAXOSMITHKLINE-B0335429A

PATIENT
  Age: 60 Year
  Sex: Male
  Weight: 98.7 kg

DRUGS (6)
  1. AVANDIA [Suspect]
     Indication: DIABETES MELLITUS
     Dosage: 4MG UNKNOWN
     Route: 048
     Dates: start: 20040322, end: 20040420
  2. GLICLAZIDE [Concomitant]
     Dosage: 160MG PER DAY
     Route: 048
     Dates: start: 20000208
  3. SIMVASTATIN [Concomitant]
     Dosage: 20MG PER DAY
     Route: 048
     Dates: start: 20011112
  4. LISINOPRIL [Concomitant]
     Dosage: 20MG PER DAY
     Route: 048
     Dates: start: 20011204
  5. METFORMIN HCL [Concomitant]
     Dosage: 550MG PER DAY
     Route: 048
     Dates: start: 20040109
  6. AMITRIPTYLINE HCL [Concomitant]
     Dosage: 50MG PER DAY
     Route: 065
     Dates: start: 20040109

REACTIONS (1)
  - PSORIASIS [None]
